FAERS Safety Report 22603006 (Version 2)
Quarter: 2023Q2

REPORT INFORMATION
  Report Type: Spontaneous
  Country: CA (occurrence: CA)
  Receive Date: 20230615
  Receipt Date: 20230617
  Transmission Date: 20230721
  Serious: Yes (Hospitalization)
  Sender: FDA-Public Use
  Company Number: CA-UNITED THERAPEUTICS-UNT-2023-015950

PATIENT
  Sex: Female

DRUGS (3)
  1. REMODULIN [Suspect]
     Active Substance: TREPROSTINIL
     Indication: Pulmonary arterial hypertension
     Dosage: 0.076 ?G/KG, CONTINUING
     Route: 058
     Dates: start: 2023
  2. REMODULIN [Suspect]
     Active Substance: TREPROSTINIL
     Dosage: 0.0667 ?G/KG, CONTINUING
     Route: 058
     Dates: start: 20230606
  3. REMODULIN [Suspect]
     Active Substance: TREPROSTINIL
     Dosage: UNK, CONTINUING
     Route: 058
     Dates: start: 20230516

REACTIONS (6)
  - Dyspnoea [Not Recovered/Not Resolved]
  - Oxygen consumption increased [Not Recovered/Not Resolved]
  - Infusion site vesicles [Recovered/Resolved]
  - Blood blister [Recovered/Resolved]
  - Infusion site erythema [Not Recovered/Not Resolved]
  - Infusion site swelling [Not Recovered/Not Resolved]

NARRATIVE: CASE EVENT DATE: 20230101
